FAERS Safety Report 17952141 (Version 2)
Quarter: 2020Q3

REPORT INFORMATION
  Report Type: Spontaneous
  Country: US (occurrence: US)
  Receive Date: 20200626
  Receipt Date: 20200806
  Transmission Date: 20201103
  Serious: No
  Sender: FDA-Public Use
  Company Number: US-ASTRAZENECA-2020SE80884

PATIENT
  Sex: Male

DRUGS (1)
  1. BYDUREON BCISE [Suspect]
     Active Substance: EXENATIDE
     Indication: TYPE 2 DIABETES MELLITUS
     Route: 058

REACTIONS (6)
  - Device temperature issue [Unknown]
  - Device leakage [Unknown]
  - Injection site coldness [Unknown]
  - Injection site discomfort [Unknown]
  - Wrong technique in device usage process [Unknown]
  - Injection site pain [Unknown]
